FAERS Safety Report 5478675-8 (Version None)
Quarter: 2007Q4

REPORT INFORMATION
  Report Type: 
  Country: None (occurrence: None)
  Receive Date: 20071005
  Receipt Date: 20070926
  Transmission Date: 20080405
  Serious: Yes (Hospitalization)
  Sender: FDA-Public Use
  Company Number: US-ABBOTT-07P-163-0418788-00

PATIENT
  Sex: Female

DRUGS (13)
  1. SYNTHROID [Suspect]
     Indication: HYPOTHYROIDISM
     Route: 048
     Dates: start: 19570101, end: 20070928
  2. SYNTHROID [Suspect]
     Route: 048
     Dates: start: 20070928
  3. FUROSEMIDE [Concomitant]
     Indication: CARDIAC FAILURE CONGESTIVE
     Route: 048
  4. CYANOCOBALAMIN [Concomitant]
     Indication: PERNICIOUS ANAEMIA
     Route: 030
  5. AMLODIPINE [Concomitant]
     Indication: HYPERTENSION
     Route: 048
  6. NITROGLYCERIN [Concomitant]
     Indication: ANGINA PECTORIS
     Route: 062
  7. MENDELAMINE [Concomitant]
     Indication: URETERIC CANCER
     Route: 048
  8. ASCORBIC ACID [Concomitant]
     Indication: VITAMIN SUPPLEMENTATION
     Route: 048
  9. FEREX [Concomitant]
     Indication: PERNICIOUS ANAEMIA
     Route: 048
  10. ALPRAZOLAM [Concomitant]
     Indication: SLEEP DISORDER THERAPY
     Route: 048
  11. DOCUSATE SODIUM [Concomitant]
     Indication: CONSTIPATION
     Route: 048
  12. LEVETIRACETAM [Concomitant]
     Indication: ASTHMA
     Dosage: NEBULIZER
  13. ASPIRIN [Concomitant]
     Indication: CARDIAC DISORDER
     Route: 048

REACTIONS (3)
  - ATRIAL FIBRILLATION [None]
  - ATRIAL FLUTTER [None]
  - BLOOD THYROID STIMULATING HORMONE INCREASED [None]
